FAERS Safety Report 15620806 (Version 1)
Quarter: 2018Q4

REPORT INFORMATION
  Report Type: Spontaneous
  Country: CH (occurrence: CH)
  Receive Date: 20181115
  Receipt Date: 20181115
  Transmission Date: 20190205
  Serious: Yes (Other)
  Sender: FDA-Public Use
  Company Number: CH-TEVA-2018-CH-972579

PATIENT
  Sex: Female

DRUGS (1)
  1. PACLITAXEL-TEVA LIQUID [Suspect]
     Active Substance: PACLITAXEL
     Dosage: 4X30MG
     Route: 065
     Dates: start: 20181016

REACTIONS (6)
  - Tachycardia [Recovering/Resolving]
  - Laryngeal oedema [Recovering/Resolving]
  - Hypersensitivity [Recovering/Resolving]
  - Cough [Recovering/Resolving]
  - Dyspnoea [Recovering/Resolving]
  - Oxygen saturation decreased [Recovering/Resolving]

NARRATIVE: CASE EVENT DATE: 20181016
